FAERS Safety Report 15243104 (Version 1)
Quarter: 2018Q3

REPORT INFORMATION
  Report Type: Spontaneous
  Country: US (occurrence: US)
  Receive Date: 20180806
  Receipt Date: 20180806
  Transmission Date: 20181010
  Serious: Yes (Other)
  Sender: FDA-Public Use
  Company Number: US-PFIZER INC-2014125014

PATIENT
  Age: 88 Year
  Sex: Female

DRUGS (1)
  1. XALATAN [Suspect]
     Active Substance: LATANOPROST
     Dosage: 2 GTT, DAILY (1 DROP EACH EYE Q DAILY)
     Route: 047

REACTIONS (4)
  - Upper limb fracture [Unknown]
  - Malaise [Unknown]
  - Eye disorder [Unknown]
  - Intraocular pressure increased [Unknown]
